FAERS Safety Report 8310551-5 (Version None)
Quarter: 2012Q2

REPORT INFORMATION
  Report Type: 
  Country: None (occurrence: None)
  Receive Date: 20120425
  Receipt Date: 20120416
  Transmission Date: 20120825
  Serious: Yes (Other)
  Sender: FDA-Public Use
  Company Number: FR-ASTRAZENECA-2012SE25916

PATIENT
  Age: 1057 Month
  Sex: Male

DRUGS (5)
  1. PREVISCAN [Concomitant]
     Dates: start: 20100101
  2. FENOFIBRATE [Concomitant]
  3. PROCORALAN [Concomitant]
     Dates: start: 20100101
  4. VALSARTAN  AND HYDROCHLOROTHIAZIDE [Concomitant]
  5. FELODIPINE [Suspect]
     Indication: HYPERTENSION
     Route: 048
     Dates: start: 20110101, end: 20120417

REACTIONS (8)
  - PAIN [None]
  - AKATHISIA [None]
  - DEPRESSION SUICIDAL [None]
  - POOR PERIPHERAL CIRCULATION [None]
  - INSOMNIA [None]
  - OEDEMA [None]
  - MUSCLE SPASMS [None]
  - NIGHTMARE [None]
